FAERS Safety Report 9649693 (Version 2)
Quarter: 2013Q4

REPORT INFORMATION
  Report Type: Spontaneous
  Country: JP (occurrence: JP)
  Receive Date: 20131028
  Receipt Date: 20131031
  Transmission Date: 20140711
  Serious: Yes (Other)
  Sender: FDA-Public Use
  Company Number: JP-009507513-1310JPN008891

PATIENT
  Age: 63 Year
  Sex: Male

DRUGS (11)
  1. FOSAPREPITANT DIMEGLUMINE [Suspect]
     Indication: PROPHYLAXIS OF NAUSEA AND VOMITING
     Dosage: 1ST CYCLE OF CHEMOTHERAPY,150 MG DAILY
     Route: 041
  2. FOSAPREPITANT DIMEGLUMINE [Suspect]
     Dosage: 2ND CYCLE OF CHEMOTHERAPY,150MG ONCE A DAY
     Route: 041
  3. FOSAPREPITANT DIMEGLUMINE [Suspect]
     Dosage: 3RD CYCLE OF CHEMOTHERAPY, 150MG ONCE A DAY
     Route: 041
  4. FOSAPREPITANT DIMEGLUMINE [Suspect]
     Dosage: 4TH CYCLE OF CHEMOTHERAPY,150MG ONCE A DAY
     Route: 041
  5. FOSAPREPITANT DIMEGLUMINE [Suspect]
     Dosage: 5TH CYCLE OF CHEMOTHERAPY,150MG ONCE A DAY
     Route: 041
  6. FOSAPREPITANT DIMEGLUMINE [Suspect]
     Dosage: 6TH CYCLE OF CHEMOTHERAPY,150MG ONCE A DAY
     Route: 041
  7. FOSAPREPITANT DIMEGLUMINE [Suspect]
     Dosage: 7TH CYCLE OF CHEMOTHERAPY,150MG ONCE A DAY, 1 DAY
     Route: 041
     Dates: start: 20130712, end: 20130712
  8. ELPLAT [Suspect]
     Indication: COLON CANCER
     Dosage: UNK
     Route: 041
     Dates: start: 20130712
  9. ALOXI [Concomitant]
     Dosage: UNK
     Dates: start: 20130712
  10. AVASTIN (BEVACIZUMAB) [Concomitant]
     Indication: COLON CANCER
     Dosage: UNK
     Dates: start: 20130712
  11. LEVOLEUCOVORIN CALCIUM [Concomitant]
     Indication: COLON CANCER
     Dosage: UNK
     Dates: start: 20130712

REACTIONS (5)
  - Blood pressure decreased [Recovered/Resolved]
  - Hypoaesthesia [Recovered/Resolved]
  - Erythema [Recovered/Resolved]
  - Abdominal pain [Recovered/Resolved]
  - Vomiting [Recovered/Resolved]
